FAERS Safety Report 6283175-1 (Version None)
Quarter: 2009Q3

REPORT INFORMATION
  Report Type: 
  Country: None (occurrence: None)
  Receive Date: 20090724
  Receipt Date: 20090716
  Transmission Date: 20100115
  Serious: Yes (Hospitalization)
  Sender: FDA-Public Use
  Company Number: B0584339A

PATIENT
  Sex: Male

DRUGS (11)
  1. DEROXAT [Suspect]
     Indication: DRUG USE FOR UNKNOWN INDICATION
     Dosage: 40MG PER DAY
     Route: 048
     Dates: start: 19900101, end: 20090623
  2. DEPAKOTE [Suspect]
     Indication: DRUG USE FOR UNKNOWN INDICATION
     Dosage: 500MG THREE TIMES PER DAY
     Route: 048
     Dates: start: 19900101, end: 20090623
  3. VIAGRA [Suspect]
     Indication: DRUG USE FOR UNKNOWN INDICATION
     Route: 048
     Dates: start: 19900101, end: 20090623
  4. ARTANE [Suspect]
     Indication: DRUG USE FOR UNKNOWN INDICATION
     Dosage: 50DROP TWICE PER DAY
     Route: 048
     Dates: start: 19900101, end: 20090623
  5. TOPALGIC ( FRANCE ) [Suspect]
     Route: 048
     Dates: start: 19900101, end: 20090623
  6. BROMAZEPAM [Suspect]
     Indication: DRUG USE FOR UNKNOWN INDICATION
     Dosage: 2UNIT PER DAY
     Route: 048
     Dates: start: 19900101, end: 20090623
  7. MEPRONIZINE [Suspect]
     Indication: DRUG USE FOR UNKNOWN INDICATION
     Dosage: 1UNIT PER DAY
     Route: 048
     Dates: start: 19900101, end: 20090623
  8. TEMESTA [Concomitant]
     Dosage: 2.5MG FOUR TIMES PER DAY
     Route: 065
     Dates: end: 20090623
  9. RISPERDAL [Concomitant]
     Dosage: 4MG PER DAY
     Route: 065
     Dates: end: 20090623
  10. DOLIPRANE [Concomitant]
     Route: 065
     Dates: end: 20090623
  11. SPASFON [Concomitant]
     Route: 065
     Dates: end: 20090623

REACTIONS (3)
  - GENERALISED OEDEMA [None]
  - HYPONATRAEMIA [None]
  - MALAISE [None]
